FAERS Safety Report 16468685 (Version 3)
Quarter: 2019Q3

REPORT INFORMATION
  Report Type: Spontaneous
  Country: US (occurrence: US)
  Receive Date: 20190624
  Receipt Date: 20190729
  Transmission Date: 20191004
  Serious: Yes (Death)
  Sender: FDA-Public Use
  Company Number: US-PFIZER INC-2019267193

PATIENT
  Age: 64 Year
  Sex: Male
  Weight: 141.97 kg

DRUGS (1)
  1. VIAGRA [Suspect]
     Active Substance: SILDENAFIL CITRATE
     Dosage: 100 MG, AS NEEDED, [100 MG TABLET AS NEEDED 1 HOUR BEFORE SEXUAL ACTIVITY]
     Dates: start: 20170306, end: 201810

REACTIONS (2)
  - Acute respiratory failure [Fatal]
  - Malaise [Unknown]
